FAERS Safety Report 10966849 (Version 1)
Quarter: 2015Q1

REPORT INFORMATION
  Report Type: Spontaneous
  Country: US (occurrence: None)
  Receive Date: 20150226
  Receipt Date: 20150226
  Transmission Date: 20150721
  Serious: No
  Sender: FDA-Public Use
  Company Number: TPA2010A02768

PATIENT
  Age: 51 Year
  Sex: Female
  Weight: 149.69 kg

DRUGS (1)
  1. ULORIC [Suspect]
     Active Substance: FEBUXOSTAT
     Indication: GOUT
     Dosage: 1 IN 1 D
     Route: 048
     Dates: start: 20100501, end: 20100505

REACTIONS (10)
  - Dysphagia [None]
  - Headache [None]
  - Asthenia [None]
  - Hypoaesthesia oral [None]
  - Balance disorder [None]
  - Dysgeusia [None]
  - Eye swelling [None]
  - Ear pain [None]
  - Local swelling [None]
  - Nausea [None]

NARRATIVE: CASE EVENT DATE: 20100505
